FAERS Safety Report 18254437 (Version 1)
Quarter: 2020Q3

REPORT INFORMATION
  Report Type: Spontaneous
  Country: NL (occurrence: NL)
  Receive Date: 20200911
  Receipt Date: 20200911
  Transmission Date: 20201103
  Serious: Yes (Hospitalization)
  Sender: FDA-Public Use
  Company Number: NL-SAMSUNG BIOEPIS-SB-2020-27926

PATIENT
  Age: 57 Year
  Sex: Female
  Weight: 97 kg

DRUGS (10)
  1. PLAQUENIL [Suspect]
     Active Substance: HYDROXYCHLOROQUINE SULFATE
     Indication: RHEUMATOID ARTHRITIS
  2. TRIAMTEREEN/HCT [Concomitant]
     Indication: PRODUCT USED FOR UNKNOWN INDICATION
     Dosage: 1 PIECE (S) ONCE A DAY, EXTRA INFO: 50/4
     Route: 065
     Dates: start: 20150801
  3. LISINOPRIL. [Concomitant]
     Active Substance: LISINOPRIL
     Indication: PRODUCT USED FOR UNKNOWN INDICATION
     Dosage: 1 TIME PER DAY 1 PIECE (S), EXTRA INFO: 10MG
     Route: 065
     Dates: start: 20100101
  4. ETANERCEPT [Suspect]
     Active Substance: ETANERCEPT
     Indication: RHEUMATOID ARTHRITIS
     Dosage: 1 PIECE (S) ONCE A WEEK, EXTRA INFO: 50MG?INJVLST 50MG/ML
     Route: 065
     Dates: start: 20150827
  5. PANTOZOL [Concomitant]
     Active Substance: PANTOPRAZOLE SODIUM
     Indication: PRODUCT USED FOR UNKNOWN INDICATION
     Dosage: 1 PIECE (S) ONCE A DAY, EXTRA INFO: 40MG
     Route: 065
     Dates: start: 20040101
  6. METHOTREXATE (METHOTREXATE SODIUM) [Suspect]
     Active Substance: METHOTREXATE SODIUM
     Indication: RHEUMATOID ARTHRITIS
     Dosage: 1 PIECE (S) ONCE A WEEK, EXTRA INFO: 25MG / WK
     Route: 065
     Dates: start: 20040101, end: 20160511
  7. SULFASALAZINE. [Suspect]
     Active Substance: SULFASALAZINE
     Indication: RHEUMATOID ARTHRITIS
     Dosage: 2 TIMES A DAY 4 PIECE (S), EXTRA INFO: 500MG
     Route: 065
     Dates: start: 20040101, end: 20160511
  8. PLAQUENIL [Suspect]
     Active Substance: HYDROXYCHLOROQUINE SULFATE
     Indication: SYSTEMIC LUPUS ERYTHEMATOSUS
     Dosage: 1 TIME PER DAY 1 PIECE (S), EXTRA INFO: 200MG
     Route: 065
     Dates: start: 20060101
  9. BISOPROLOL [Concomitant]
     Active Substance: BISOPROLOL
     Indication: PRODUCT USED FOR UNKNOWN INDICATION
     Dosage: 1 TIME PER DAY 1 PIECE (S), EXTRA INFO: 10MG
     Route: 065
     Dates: start: 20100101
  10. TRIAMTEREEN/HCT [Concomitant]
     Dosage: 1 PIECE (S) ONCE A DAY, EXTRA INFO: 50/4
     Route: 065
     Dates: start: 20150801

REACTIONS (1)
  - Haemolytic anaemia [Not Recovered/Not Resolved]

NARRATIVE: CASE EVENT DATE: 20160411
